FAERS Safety Report 20427163 (Version 1)
Quarter: 2022Q1

REPORT INFORMATION
  Report Type: Report from Study
  Country: US (occurrence: US)
  Receive Date: 20220204
  Receipt Date: 20220204
  Transmission Date: 20220423
  Serious: No
  Sender: FDA-Public Use
  Company Number: US-EXELIXIS-CABO-21043341

PATIENT
  Sex: Female

DRUGS (2)
  1. COMETRIQ [Suspect]
     Active Substance: CABOZANTINIB S-MALATE
     Indication: Medullary thyroid cancer
     Dosage: 20 MG
     Dates: start: 20210817
  2. COMETRIQ [Suspect]
     Active Substance: CABOZANTINIB S-MALATE
     Dosage: 60 MG, QD

REACTIONS (5)
  - Oral herpes [Recovered/Resolved]
  - Blood pressure fluctuation [Unknown]
  - Tongue blistering [Recovered/Resolved]
  - Blister [Not Recovered/Not Resolved]
  - Wrong technique in product usage process [Unknown]
